FAERS Safety Report 24331147 (Version 4)
Quarter: 2024Q4

REPORT INFORMATION
  Report Type: Report from Study
  Country: GR (occurrence: GR)
  Receive Date: 20240918
  Receipt Date: 20241209
  Transmission Date: 20250115
  Serious: Yes (Hospitalization, Other)
  Sender: ABBVIE
  Company Number: GR-ABBVIE-5923505

PATIENT
  Age: 77 Year
  Sex: Female
  Weight: 77 kg

DRUGS (8)
  1. CARBIDOPA\LEVODOPA [Suspect]
     Active Substance: CARBIDOPA\LEVODOPA
     Indication: Parkinson^s disease
     Dosage: MORNING DOSE: 6.7ML; CONTINUOUS RATE: 1.9ML/H; EXTRA DOSE: 0.5ML
     Route: 050
     Dates: start: 20231215, end: 20240910
  2. CARBIDOPA\LEVODOPA [Suspect]
     Active Substance: CARBIDOPA\LEVODOPA
     Dosage: MORNING DOSE: 6.7ML; CONTINUOUS RATE: 2.0ML/H; EXTRA DOSE: 1.0ML?DRUG START DATE - SEP 2024
     Route: 050
  3. CARBIDOPA\LEVODOPA [Suspect]
     Active Substance: CARBIDOPA\LEVODOPA
     Dosage: MORNING DOSE: 6.7ML; CONTINUOUS RATE: 2.0ML/H; EXTRA DOSE: 1.0ML
     Route: 050
  4. NEUPRO [Concomitant]
     Active Substance: ROTIGOTINE
     Indication: Product used for unknown indication
     Route: 062
  5. BENSERAZIDE HYDROCHLORIDE\LEVODOPA [Concomitant]
     Active Substance: BENSERAZIDE HYDROCHLORIDE\LEVODOPA
     Indication: Product used for unknown indication
     Dosage: (2 TIMES, HALF THE FORM STRENGTH AND ANOTHER 2 TIMES THREE-QUARTERS OF FORM STRENGTH)
  6. CLONAZEPAM [Concomitant]
     Active Substance: CLONAZEPAM
     Indication: Product used for unknown indication
     Dosage: UNIT DOSE: HALF OF UNSPECIFIED FORM STRENGTH
     Route: 048
  7. ATORVASTATIN CALCIUM TRIHYDRATE\EZETIMIBE [Concomitant]
     Active Substance: ATORVASTATIN CALCIUM TRIHYDRATE\EZETIMIBE
     Indication: Hypercholesterolaemia
     Route: 048
  8. MELATONIN [Concomitant]
     Active Substance: MELATONIN
     Indication: Product used for unknown indication
     Route: 048

REACTIONS (10)
  - Seizure [Recovered/Resolved]
  - Hyperhidrosis [Unknown]
  - Altered state of consciousness [Recovered/Resolved]
  - Hyponatraemia [Recovered/Resolved]
  - Constipation [Unknown]
  - Stoma site discharge [Not Recovered/Not Resolved]
  - Stoma site hypergranulation [Recovering/Resolving]
  - COVID-19 [Recovered/Resolved]
  - Stoma site discharge [Recovered/Resolved]
  - Decubitus ulcer [Unknown]

NARRATIVE: CASE EVENT DATE: 20240901
